FAERS Safety Report 17368540 (Version 1)
Quarter: 2020Q1

REPORT INFORMATION
  Report Type: Spontaneous
  Country: JP (occurrence: JP)
  Receive Date: 20200204
  Receipt Date: 20200204
  Transmission Date: 20200409
  Serious: Yes (Hospitalization)
  Sender: FDA-Public Use
  Company Number: JP-009507513-2001JPN003130J

PATIENT
  Age: 94 Year
  Sex: Female

DRUGS (2)
  1. STROMECTOL [Suspect]
     Active Substance: IVERMECTIN
     Dosage: 12 MILLIGRAM, ONCE
     Route: 048
     Dates: start: 20191111, end: 20191111
  2. STROMECTOL [Suspect]
     Active Substance: IVERMECTIN
     Indication: ACARODERMATITIS
     Dosage: 12 MILLIGRAM, ONCE
     Route: 048
     Dates: start: 20191028, end: 20191028

REACTIONS (3)
  - Dizziness [Unknown]
  - Microcytic anaemia [Unknown]
  - Hypotension [Unknown]
